FAERS Safety Report 4980383-4 (Version None)
Quarter: 2006Q2

REPORT INFORMATION
  Report Type: 
  Country: None (occurrence: None)
  Receive Date: 20060424
  Receipt Date: 20050930
  Transmission Date: 20061013
  Serious: Yes (Hospitalization)
  Sender: FDA-Public Use
  Company Number: US-BRISTOL-MYERS SQUIBB COMPANY-13128400

PATIENT
  Age: 52 Year
  Sex: Female
  Weight: 52 kg

DRUGS (14)
  1. CARBOPLATIN [Suspect]
     Indication: OVARIAN CANCER
     Route: 042
     Dates: start: 20050801
  2. PACLITAXEL [Suspect]
     Indication: OVARIAN CANCER
     Route: 042
     Dates: start: 20050801
  3. PEPCID [Concomitant]
  4. ATIVAN [Concomitant]
  5. FENTANYL [Concomitant]
     Route: 050
  6. DILAUDID [Concomitant]
  7. AMBIEN [Concomitant]
  8. LISINOPRIL [Concomitant]
  9. SENNA [Concomitant]
  10. ATENOLOL [Concomitant]
  11. VANCOMYCIN [Concomitant]
  12. ZOSYN [Concomitant]
  13. PHENERGAN HCL [Concomitant]
  14. ZOFRAN [Concomitant]

REACTIONS (4)
  - ABDOMINAL PAIN [None]
  - CATHETER RELATED INFECTION [None]
  - CATHETER SEPSIS [None]
  - CONSTIPATION [None]
